FAERS Safety Report 8251341-1 (Version None)
Quarter: 2012Q2

REPORT INFORMATION
  Report Type: 
  Country: None (occurrence: None)
  Receive Date: 20120402
  Receipt Date: 20120323
  Transmission Date: 20120825
  Serious: Yes (Hospitalization)
  Sender: FDA-Public Use
  Company Number: JP-GLAXOSMITHKLINE-B0673064A

PATIENT
  Sex: Female
  Weight: 48 kg

DRUGS (7)
  1. BETAMETHASONE [Concomitant]
     Indication: NAUSEA
     Route: 048
  2. OMEPRAZOLE [Concomitant]
     Indication: GASTRIC ULCER
     Route: 048
  3. XELODA [Concomitant]
     Dosage: 3000MG PER DAY
     Route: 048
     Dates: start: 20091216, end: 20100121
  4. PURSENNID [Concomitant]
     Indication: CONSTIPATION
     Route: 048
  5. BISACODYL [Concomitant]
     Indication: CONSTIPATION
     Route: 054
  6. TYKERB [Suspect]
     Indication: BREAST CANCER
     Dosage: 1250MG PER DAY
     Route: 048
     Dates: start: 20091216, end: 20100120
  7. MAGNESIUM SULFATE [Concomitant]
     Indication: CONSTIPATION
     Route: 048

REACTIONS (8)
  - MALAISE [None]
  - ASPARTATE AMINOTRANSFERASE INCREASED [None]
  - COUGH [None]
  - ATYPICAL MYCOBACTERIAL INFECTION [None]
  - C-REACTIVE PROTEIN INCREASED [None]
  - HEPATIC FUNCTION ABNORMAL [None]
  - ALANINE AMINOTRANSFERASE INCREASED [None]
  - PRODUCTIVE COUGH [None]
